FAERS Safety Report 4634128-8 (Version None)
Quarter: 2005Q2

REPORT INFORMATION
  Report Type: 
  Country: None (occurrence: None)
  Receive Date: 20050413
  Receipt Date: 20050215
  Transmission Date: 20051028
  Serious: Yes (Other)
  Sender: FDA-Public Use
  Company Number: DE-GLAXOSMITHKLINE-D0045900A

PATIENT
  Age: 17 Year
  Sex: Male
  Weight: 75 kg

DRUGS (1)
  1. LAMICTAL [Suspect]
     Indication: GRAND MAL CONVULSION
     Dosage: 200MG TWICE PER DAY
     Route: 048
     Dates: start: 20041101

REACTIONS (3)
  - AGGRESSION [None]
  - NOCTURIA [None]
  - SLEEP DISORDER [None]
